FAERS Safety Report 15082647 (Version 1)
Quarter: 2018Q2

REPORT INFORMATION
  Report Type: Spontaneous
  Country: PL (occurrence: PL)
  Receive Date: 20180628
  Receipt Date: 20180628
  Transmission Date: 20180711
  Serious: Yes (Hospitalization)
  Sender: FDA-Public Use
  Company Number: PL-VIVIMED-2018SP005261

PATIENT

DRUGS (1)
  1. AMLODIPINE [Suspect]
     Active Substance: AMLODIPINE BESYLATE
     Indication: PRODUCT USED FOR UNKNOWN INDICATION
     Dosage: 5 MG/DAY
     Route: 065

REACTIONS (5)
  - Erythema annulare [Recovered/Resolved]
  - Skin lesion [Recovered/Resolved]
  - Skin hyperpigmentation [Unknown]
  - Subacute cutaneous lupus erythematosus [Recovered/Resolved]
  - Pruritus [Recovered/Resolved]
